FAERS Safety Report 7029083-X (Version None)
Quarter: 2010Q4

REPORT INFORMATION
  Report Type: 
  Country: None (occurrence: None)
  Receive Date: 20101005
  Receipt Date: 20100927
  Transmission Date: 20110411
  Serious: Yes (Hospitalization)
  Sender: FDA-Public Use
  Company Number: B0676778A

PATIENT
  Age: 77 Year
  Sex: Female

DRUGS (4)
  1. AVANDAMET [Suspect]
     Dosage: 4MG TWICE PER DAY
     Route: 048
     Dates: start: 20100701
  2. KARDEGIC [Concomitant]
  3. PRETERAX [Concomitant]
  4. AMLODIPINE [Concomitant]

REACTIONS (4)
  - CARDIAC FAILURE ACUTE [None]
  - DYSPNOEA [None]
  - OEDEMA PERIPHERAL [None]
  - PLEURAL EFFUSION [None]
